FAERS Safety Report 10338129 (Version 3)
Quarter: 2014Q3

REPORT INFORMATION
  Report Type: Spontaneous
  Country: GB (occurrence: GB)
  Receive Date: 20140724
  Receipt Date: 20140925
  Transmission Date: 20150326
  Serious: Yes (Other)
  Sender: FDA-Public Use
  Company Number: GB-JNJFOC-20140708427

PATIENT
  Age: 43 Year
  Sex: Male

DRUGS (12)
  1. COCODAMOL [Suspect]
     Active Substance: ACETAMINOPHEN\CODEINE PHOSPHATE
     Indication: PRODUCT USED FOR UNKNOWN INDICATION
     Route: 065
  2. CODEINE [Suspect]
     Active Substance: CODEINE
     Indication: PAIN
     Route: 065
  3. LYRICA [Suspect]
     Active Substance: PREGABALIN
     Indication: ANXIETY
     Route: 048
  4. LYRICA [Suspect]
     Active Substance: PREGABALIN
     Indication: PAIN
     Route: 048
     Dates: start: 201211
  5. LYRICA [Suspect]
     Active Substance: PREGABALIN
     Indication: ANXIETY
     Route: 048
     Dates: start: 20140701
  6. LYRICA [Suspect]
     Active Substance: PREGABALIN
     Indication: ANXIETY
     Route: 048
     Dates: start: 201302
  7. LYRICA [Suspect]
     Active Substance: PREGABALIN
     Indication: PAIN
     Route: 048
  8. PARACETAMOL [Concomitant]
     Active Substance: ACETAMINOPHEN
     Indication: PAIN
     Route: 065
  9. LYRICA [Suspect]
     Active Substance: PREGABALIN
     Indication: ANXIETY
     Route: 048
     Dates: start: 201211
  10. TRAMADOL HYDROCHLORIDE. [Suspect]
     Active Substance: TRAMADOL HYDROCHLORIDE
     Indication: PAIN
     Route: 065
  11. LYRICA [Suspect]
     Active Substance: PREGABALIN
     Indication: PAIN
     Route: 048
     Dates: start: 20140701
  12. LYRICA [Suspect]
     Active Substance: PREGABALIN
     Indication: PAIN
     Route: 048
     Dates: start: 201302

REACTIONS (18)
  - Malaise [Unknown]
  - Memory impairment [Recovered/Resolved]
  - Asthenopia [Recovered/Resolved]
  - Pain [Unknown]
  - Feeling abnormal [Recovered/Resolved]
  - Suicide attempt [Unknown]
  - Anxiety [Unknown]
  - Disturbance in attention [Unknown]
  - Euphoric mood [Unknown]
  - Influenza like illness [Unknown]
  - Fatigue [Unknown]
  - Hyperhidrosis [Unknown]
  - Asthenia [Unknown]
  - Disinhibition [Unknown]
  - Confusional state [Recovered/Resolved]
  - Bipolar I disorder [Unknown]
  - Nervousness [Unknown]
  - Insomnia [Unknown]

NARRATIVE: CASE EVENT DATE: 20140701
